FAERS Safety Report 16108851 (Version 2)
Quarter: 2019Q2

REPORT INFORMATION
  Report Type: Spontaneous
  Country: CH (occurrence: CH)
  Receive Date: 20190323
  Receipt Date: 20190403
  Transmission Date: 20190711
  Serious: Yes (Other)
  Sender: FDA-Public Use
  Company Number: PHHY2019CH059347

PATIENT
  Sex: Male

DRUGS (2)
  1. LAMOTRIGINE. [Suspect]
     Active Substance: LAMOTRIGINE
     Indication: PARTIAL SEIZURES
     Dosage: UNK
     Route: 065
  2. LEVETIRACETAM. [Suspect]
     Active Substance: LEVETIRACETAM
     Indication: PARTIAL SEIZURES
     Dosage: 200 MG, UNK, 1.5-0-1.5 UNTIL WEEK 6
     Route: 065

REACTIONS (5)
  - Drug intolerance [Unknown]
  - Seizure [Unknown]
  - Limb injury [Unknown]
  - Spinal cord injury [Unknown]
  - Product prescribing issue [Unknown]
